FAERS Safety Report 9293368 (Version 1)
Quarter: 2013Q2

REPORT INFORMATION
  Report Type: Spontaneous
  Country: PT (occurrence: PT)
  Receive Date: 20130516
  Receipt Date: 20130516
  Transmission Date: 20140414
  Serious: Yes (Hospitalization)
  Sender: FDA-Public Use
  Company Number: PT-SANOFI-AVENTIS-2013SA047932

PATIENT
  Age: 99 Year
  Sex: Male
  Weight: 50 kg

DRUGS (8)
  1. LOVENOX [Suspect]
     Indication: PERIPHERAL ARTERIAL OCCLUSIVE DISEASE
     Dosage: 12/12 HORAS.
     Route: 058
     Dates: start: 20130411, end: 20130422
  2. FERROUS SULFATE [Concomitant]
     Route: 048
     Dates: start: 20130418, end: 201305
  3. PIPERACILLIN/TAZOBACTAM [Concomitant]
     Indication: PERIPHERAL ARTERIAL OCCLUSIVE DISEASE
     Route: 042
     Dates: start: 20130418, end: 201305
  4. PARACETAMOL [Concomitant]
     Route: 042
     Dates: start: 20130418, end: 201305
  5. TRAMADOL [Concomitant]
     Indication: PERIPHERAL ARTERIAL OCCLUSIVE DISEASE
     Route: 042
     Dates: start: 20130419, end: 201305
  6. METOCLOPRAMIDE [Concomitant]
     Route: 042
     Dates: start: 20130419, end: 201305
  7. LORAZEPAM [Concomitant]
     Route: 048
     Dates: start: 20130419, end: 201305
  8. BUNIL [Concomitant]
     Route: 048
     Dates: start: 20130419, end: 201305

REACTIONS (3)
  - Post procedural complication [Recovering/Resolving]
  - Haematoma [Recovering/Resolving]
  - Abdominal wall haematoma [Recovering/Resolving]
